FAERS Safety Report 4972671-2 (Version None)
Quarter: 2006Q1

REPORT INFORMATION
  Report Type: 
  Country: None (occurrence: None)
  Receive Date: 20060216
  Receipt Date: 20040423
  Transmission Date: 20060701
  Serious: Yes (Other)
  Sender: FDA-Public Use
  Company Number: 2003IM000115

PATIENT
  Age: 44 Year
  Sex: Female
  Weight: 107.2303 kg

DRUGS (15)
  1. INTERFERON GAMMA-1B [Suspect]
     Indication: OVARIAN CANCER
     Dosage: 100 UG, TIW, SUBCUTANEOUS
     Route: 058
     Dates: start: 20021114, end: 20021130
  2. CARBOPLATIN [Suspect]
     Indication: OVARIAN CANCER
     Dosage: 685 MG, Q3W, INTRAVENOUS
     Route: 042
     Dates: start: 20021114, end: 20021114
  3. PACLITAXEL [Suspect]
     Indication: OVARIAN CANCER
     Dosage: 350 MG, Q3W, INTRAVENOUS
     Route: 042
     Dates: start: 20021114, end: 20021114
  4. LABETALOL [Concomitant]
  5. PROCRIT [Concomitant]
  6. DEXAMETHASONE [Concomitant]
  7. KYTRIL [Concomitant]
  8. CIMETIDINE [Concomitant]
  9. BENADRYL [Concomitant]
  10. DSS [Concomitant]
  11. TYLENOL (CAPLET) [Concomitant]
  12. ADVIL [Concomitant]
  13. PROCRIT [Concomitant]
  14. PROCHLORPERAZINE [Concomitant]
  15. ESTRADERM [Concomitant]

REACTIONS (1)
  - NEUTROPENIA [None]
